FAERS Safety Report 8227740-0 (Version None)
Quarter: 2012Q1

REPORT INFORMATION
  Report Type: 
  Country: None (occurrence: None)
  Receive Date: 20120322
  Receipt Date: 20120319
  Transmission Date: 20120608
  Serious: No
  Sender: FDA-Public Use
  Company Number: US-BAYER-2012-027435

PATIENT
  Age: 67 Year
  Sex: Male

DRUGS (3)
  1. ASTHMA MEDICATION [Concomitant]
     Indication: ASTHMA
  2. LEVITRA [Suspect]
     Indication: ERECTILE DYSFUNCTION
     Dosage: 10 MG, UNK
     Route: 048
     Dates: start: 20110101
  3. HEART MEDICATION [Concomitant]
     Indication: CARDIAC DISORDER

REACTIONS (1)
  - NO ADVERSE EVENT [None]
